FAERS Safety Report 5395183-3 (Version None)
Quarter: 2007Q3

REPORT INFORMATION
  Report Type: 
  Country: None (occurrence: None)
  Receive Date: 20070724
  Receipt Date: 20070713
  Transmission Date: 20080115
  Serious: Yes (Other)
  Sender: FDA-Public Use
  Company Number: BR-ROCHE-507383

PATIENT
  Age: 19 Year
  Sex: Female
  Weight: 57 kg

DRUGS (2)
  1. ISOTRETINOIN [Suspect]
     Indication: ACNE
     Route: 048
     Dates: start: 20070404, end: 20070611
  2. CONTRACEPTIVE DRUG NOS [Concomitant]
     Indication: CONTRACEPTION
     Dosage: STOP DATE REPORTED TO BE 2007

REACTIONS (2)
  - NO ADVERSE REACTION [None]
  - PREGNANCY [None]
